FAERS Safety Report 10273147 (Version 1)
Quarter: 2014Q3

REPORT INFORMATION
  Report Type: Spontaneous
  Country: US (occurrence: US)
  Receive Date: 20140702
  Receipt Date: 20140702
  Transmission Date: 20150326
  Serious: No
  Sender: FDA-Public Use
  Company Number: US-B.I. PHARMACEUTICALS,INC./RIDGEFIELD-2014-BI-28876BP

PATIENT
  Age: 87 Year
  Sex: Female
  Weight: 56.24 kg

DRUGS (12)
  1. PLAVIX [Concomitant]
     Active Substance: CLOPIDOGREL BISULFATE
     Dosage: 75 MG
     Route: 048
  2. IRON [Concomitant]
     Active Substance: IRON
     Route: 048
  3. FORADIL [Concomitant]
     Active Substance: FORMOTEROL FUMARATE
     Indication: CHRONIC OBSTRUCTIVE PULMONARY DISEASE
     Route: 055
  4. SPIRIVA [Suspect]
     Active Substance: TIOTROPIUM BROMIDE MONOHYDRATE
     Indication: CHRONIC OBSTRUCTIVE PULMONARY DISEASE
     Dosage: 18 MCG
     Route: 055
     Dates: start: 2004
  5. ASPIRIN. [Concomitant]
     Active Substance: ASPIRIN
     Dosage: 81 MG
     Route: 048
  6. TOPROL XL [Concomitant]
     Active Substance: METOPROLOL SUCCINATE
     Route: 048
  7. ALLERGY PILL [Concomitant]
     Active Substance: UNSPECIFIED INGREDIENT
     Route: 048
  8. CENTRUM SILVER [Concomitant]
     Active Substance: VITAMINS
     Route: 048
  9. POTASSIUM [Concomitant]
     Active Substance: POTASSIUM
     Dosage: 10 MEQ
     Route: 048
  10. FUROSEMIDE. [Concomitant]
     Active Substance: FUROSEMIDE
     Route: 048
  11. PULMICORT TURBUHALER [Concomitant]
     Active Substance: BUDESONIDE
     Indication: CHRONIC OBSTRUCTIVE PULMONARY DISEASE
     Route: 055
  12. ALBUTEROL. [Concomitant]
     Active Substance: ALBUTEROL
     Indication: CHRONIC OBSTRUCTIVE PULMONARY DISEASE
     Route: 055

REACTIONS (2)
  - Visual acuity reduced [Not Recovered/Not Resolved]
  - Thrombosis [Recovered/Resolved]

NARRATIVE: CASE EVENT DATE: 201303
